FAERS Safety Report 7698806-9 (Version None)
Quarter: 2011Q3

REPORT INFORMATION
  Report Type: 
  Country: None (occurrence: None)
  Receive Date: 20110819
  Receipt Date: 20110606
  Transmission Date: 20111222
  Serious: Yes (Other)
  Sender: FDA-Public Use
  Company Number: US-BAYER-2011-036189

PATIENT
  Age: 86 Year
  Sex: Male
  Weight: 98.1 kg

DRUGS (4)
  1. SARGRAMOSTIM [Suspect]
     Indication: MALIGNANT MELANOMA
  2. ANTINEOPLASTIC AGENTS [Suspect]
     Indication: MALIGNANT MELANOMA
     Dosage: 10 MG/KG, DAY 1 OF 21 DAY CYCLE
     Route: 042
     Dates: start: 20110311, end: 20110311
  3. ANTINEOPLASTIC AGENTS [Suspect]
     Dosage: 10 MG/KG, DAY 1 OF 21 DAY CYCLE
     Route: 042
     Dates: start: 20110513, end: 20110513
  4. ANTINEOPLASTIC AGENTS [Suspect]
     Dosage: 10 MG/KG, DAY 1 OF 21 DAY CYCLE
     Route: 042
     Dates: start: 20110401, end: 20110401

REACTIONS (2)
  - PALMAR-PLANTAR ERYTHRODYSAESTHESIA SYNDROME [None]
  - URTICARIA [None]
